FAERS Safety Report 7551149-6 (Version None)
Quarter: 2011Q2

REPORT INFORMATION
  Report Type: 
  Country: None (occurrence: None)
  Receive Date: 20110616
  Receipt Date: 20110614
  Transmission Date: 20111010
  Serious: Yes (Hospitalization)
  Sender: FDA-Public Use
  Company Number: DE-SANOFI-AVENTIS-2011SA037559

PATIENT
  Age: 6 Year
  Sex: Female
  Weight: 21.6 kg

DRUGS (4)
  1. TOCILIZUMAB [Suspect]
     Dosage: 220MG IV EVERY 2 WEEKS
     Route: 042
  2. METHOTREXATE [Concomitant]
     Indication: JUVENILE ARTHRITIS
     Route: 065
     Dates: end: 20110220
  3. LEFLUNOMIDE [Suspect]
     Route: 048
     Dates: start: 20110301, end: 20110329
  4. PREDNISONE [Concomitant]
     Route: 065

REACTIONS (8)
  - SERUM FERRITIN INCREASED [None]
  - HISTIOCYTOSIS HAEMATOPHAGIC [None]
  - THROMBOCYTOPENIA [None]
  - PYREXIA [None]
  - BLOOD TRIGLYCERIDES INCREASED [None]
  - BLOOD FIBRINOGEN DECREASED [None]
  - WHITE BLOOD CELL COUNT DECREASED [None]
  - ARTHRITIS [None]
